FAERS Safety Report 6022467-8 (Version None)
Quarter: 2008Q4

REPORT INFORMATION
  Report Type: 
  Country: None (occurrence: None)
  Receive Date: 20081221
  Receipt Date: 20081221
  Transmission Date: 20090506
  Serious: Yes (Other)
  Sender: FDA-Public Use
  Company Number: None

PATIENT
  Sex: Female
  Weight: 78.9259 kg

DRUGS (1)
  1. SEROQUEL [Suspect]
     Indication: SLEEP DISORDER
     Dosage: PILL AT BEDTIME 1
     Dates: start: 20081001, end: 20081221

REACTIONS (5)
  - ADVERSE REACTION [None]
  - ANHEDONIA [None]
  - APATHY [None]
  - PERSONALITY CHANGE [None]
  - SUICIDAL IDEATION [None]
